FAERS Safety Report 17420249 (Version 1)
Quarter: 2020Q1

REPORT INFORMATION
  Report Type: Spontaneous
  Country: US (occurrence: US)
  Receive Date: 20200214
  Receipt Date: 20200214
  Transmission Date: 20200409
  Serious: No
  Sender: FDA-Public Use
  Company Number: US-ASTRAZENECA-2020SE09666

PATIENT
  Age: 30 Year
  Sex: Female

DRUGS (1)
  1. FASENRA [Suspect]
     Active Substance: BENRALIZUMAB
     Indication: WHITE BLOOD CELLS STOOL POSITIVE
     Route: 058

REACTIONS (2)
  - Irritable bowel syndrome [Unknown]
  - Off label use [Unknown]
